FAERS Safety Report 22290988 (Version 2)
Quarter: 2023Q2

REPORT INFORMATION
  Report Type: Spontaneous
  Country: ES (occurrence: ES)
  Receive Date: 20230506
  Receipt Date: 20230614
  Transmission Date: 20230721
  Serious: Yes (Other)
  Sender: FDA-Public Use
  Company Number: ES-002147023-NVSC2023ES099818

PATIENT
  Age: 72 Year
  Sex: Female

DRUGS (1)
  1. BEOVU [Suspect]
     Active Substance: BROLUCIZUMAB-DBLL
     Indication: Polypoidal choroidal vasculopathy
     Dosage: UNK
     Route: 031
     Dates: start: 20230323

REACTIONS (5)
  - Vitritis [Recovered/Resolved]
  - Retinal vasculitis [Unknown]
  - Vitreous detachment [Unknown]
  - Vitreous floaters [Recovering/Resolving]
  - Cataract [Unknown]

NARRATIVE: CASE EVENT DATE: 20230407
